FAERS Safety Report 10643132 (Version 2)
Quarter: 2015Q1

REPORT INFORMATION
  Report Type: Spontaneous
  Country: IT (occurrence: IT)
  Receive Date: 20141210
  Receipt Date: 20150219
  Transmission Date: 20150720
  Serious: Yes (Hospitalization)
  Sender: FDA-Public Use
  Company Number: IT-SA-2014SA167320

PATIENT
  Age: 85 Year
  Sex: Male

DRUGS (20)
  1. CONGESCOR [Concomitant]
     Active Substance: BISOPROLOL
  2. CARDIOASPIRIN [Concomitant]
     Active Substance: ASPIRIN
  3. FLUIMUCIL [Concomitant]
     Active Substance: ACETYLCYSTEINE
  4. ZYLORIC [Concomitant]
     Active Substance: ALLOPURINOL
  5. AVODART [Concomitant]
     Active Substance: DUTASTERIDE
  6. LASIX [Suspect]
     Active Substance: FUROSEMIDE
     Route: 048
     Dates: start: 20141112, end: 20141129
  7. TACHIPIRINA [Concomitant]
     Active Substance: ACETAMINOPHEN
  8. CLENIL [Concomitant]
     Active Substance: BECLOMETHASONE DIPROPIONATE
  9. DUROGESIC [Suspect]
     Active Substance: FENTANYL
     Dosage: STRENGTH: 50MICROGRAM/HOUR
     Route: 062
     Dates: start: 20141129, end: 20141129
  10. AUGMENTIN [Concomitant]
     Active Substance: AMOXICILLIN\CLAVULANATE POTASSIUM
     Route: 048
     Dates: start: 20141119, end: 20141129
  11. SPIRIVA [Concomitant]
     Active Substance: TIOTROPIUM BROMIDE MONOHYDRATE
     Dosage: CAPSULES WITH HANDIHALER
  12. DIAMICRON [Concomitant]
     Active Substance: GLICLAZIDE
  13. DELTACORTENE [Concomitant]
     Active Substance: PREDNISONE
  14. PARIET [Concomitant]
     Active Substance: RABEPRAZOLE SODIUM
  15. BRONCOVALEAS [Concomitant]
     Active Substance: ALBUTEROL
  16. CISTALGAN [Concomitant]
  17. ALDACTONE [Suspect]
     Active Substance: SPIRONOLACTONE
     Route: 048
     Dates: start: 20141112, end: 20141129
  18. PALEXIA [Suspect]
     Active Substance: TAPENTADOL HYDROCHLORIDE
     Route: 048
     Dates: start: 20141112, end: 20141129
  19. TERAZOSIN HYDROCHLORIDE. [Concomitant]
     Active Substance: TERAZOSIN HYDROCHLORIDE
  20. SERETIDE [Concomitant]
     Active Substance: FLUTICASONE FUROATE\SALMETEROL XINAFOATE

REACTIONS (3)
  - Sopor [Recovering/Resolving]
  - Respiratory failure [Recovering/Resolving]
  - Hypotension [Recovering/Resolving]

NARRATIVE: CASE EVENT DATE: 20141129
